FAERS Safety Report 12207195 (Version 1)
Quarter: 2016Q1

REPORT INFORMATION
  Report Type: Spontaneous
  Country: US (occurrence: None)
  Receive Date: 20160323
  Receipt Date: 20160323
  Transmission Date: 20160526
  Serious: Yes (Hospitalization)
  Sender: FDA-Public Use
  Company Number: None

PATIENT
  Age: 54 Year
  Sex: Male

DRUGS (23)
  1. METRONIDAZOLE. [Concomitant]
     Active Substance: METRONIDAZOLE
  2. PANCREALIPASE [Concomitant]
     Active Substance: PANCRELIPASE
  3. VALACYCLOVIR [Concomitant]
     Active Substance: VALACYCLOVIR HYDROCHLORIDE
  4. CHLORHEXADINE [Concomitant]
     Active Substance: CHLORHEXIDINE
  5. LANSOPRAZOLE. [Concomitant]
     Active Substance: LANSOPRAZOLE
  6. MAGNESIUM CITRATE. [Concomitant]
     Active Substance: MAGNESIUM CITRATE
  7. ACETAMINOPHEN. [Concomitant]
     Active Substance: ACETAMINOPHEN
  8. AMIODARONE [Concomitant]
     Active Substance: AMIODARONE
  9. OXYCODONE-ACETAMINOPHEN [Concomitant]
     Active Substance: ACETAMINOPHEN\OXYCODONE HYDROCHLORIDE
  10. SENNA [Concomitant]
     Active Substance: SENNA LEAF\SENNOSIDES\SENNOSIDES A AND B
  11. LINEZOLID. [Suspect]
     Active Substance: LINEZOLID
     Indication: PNEUMONIA
     Route: 042
     Dates: start: 20160212, end: 20160223
  12. CASPOFUNGIN [Concomitant]
     Active Substance: CASPOFUNGIN
  13. HYDROCORTISONE. [Concomitant]
     Active Substance: HYDROCORTISONE
  14. INSULIN ASPART [Concomitant]
     Active Substance: INSULIN ASPART
  15. TACROLIMUS. [Concomitant]
     Active Substance: TACROLIMUS
  16. TRAZODONE [Concomitant]
     Active Substance: TRAZODONE HYDROCHLORIDE
  17. ALPRAZOLAM. [Concomitant]
     Active Substance: ALPRAZOLAM
  18. DOCUSATE [Concomitant]
     Active Substance: DOCUSATE
  19. MYCOPHENOLATE [Concomitant]
     Active Substance: MYCOPHENOLIC ACID
  20. COLISTIMETHATE [Concomitant]
     Active Substance: COLISTIMETHATE SODIUM
  21. METOPROLOL TARTRATE. [Concomitant]
     Active Substance: METOPROLOL TARTRATE
  22. NYSTATIN ORAL LIQUID [Concomitant]
     Active Substance: NYSTATIN
  23. PHYTONADIONE. [Concomitant]
     Active Substance: PHYTONADIONE

REACTIONS (1)
  - Platelet count decreased [None]

NARRATIVE: CASE EVENT DATE: 20160212
